FAERS Safety Report 8152510 (Version 3)
Quarter: 2013Q1

REPORT INFORMATION
  Report Type: Spontaneous
  Country: US (occurrence: US)
  Receive Date: 20110922
  Receipt Date: 20130128
  Transmission Date: 20140127
  Serious: Yes (Life-Threatening, Hospitalization, Other)
  Sender: FDA-Public Use
  Company Number: US-ASTRAZENECA-2010SE37930

PATIENT
  Age: 62 Year
  Sex: Female
  Weight: 77.1 kg

DRUGS (6)
  1. SEROQUEL [Suspect]
     Indication: BIPOLAR DISORDER
     Route: 048
  2. SEROQUEL [Suspect]
     Indication: BIPOLAR DISORDER
     Route: 048
     Dates: start: 2005
  3. EFFEXOR [Suspect]
     Indication: DEPRESSION
     Route: 065
  4. XANAX [Suspect]
     Route: 065
     Dates: end: 2009
  5. PRESTIQ [Concomitant]
     Indication: DEPRESSION
  6. KLONOPIN [Concomitant]
     Indication: POST-TRAUMATIC STRESS DISORDER

REACTIONS (5)
  - Suicide attempt [Unknown]
  - Convulsion [Recovered/Resolved]
  - Chest pain [Unknown]
  - Drug dose omission [Unknown]
  - Therapeutic response unexpected [Unknown]
